FAERS Safety Report 6902646-5 (Version None)
Quarter: 2010Q3

REPORT INFORMATION
  Report Type: 
  Country: None (occurrence: None)
  Receive Date: 20100803
  Receipt Date: 20080816
  Transmission Date: 20110219
  Serious: No
  Sender: FDA-Public Use
  Company Number: US-PFIZER INC-2008068987

PATIENT
  Sex: Female
  Weight: 81.65 kg

DRUGS (6)
  1. LYRICA [Suspect]
     Indication: PAIN
     Dates: start: 20080701, end: 20080814
  2. LYRICA [Suspect]
     Indication: NEUROPATHY PERIPHERAL
  3. ZANTAC [Concomitant]
  4. ROZEREM [Concomitant]
  5. CORGARD [Concomitant]
  6. PAMELOR [Concomitant]

REACTIONS (5)
  - BLOOD THYROID STIMULATING HORMONE DECREASED [None]
  - DIZZINESS [None]
  - GLUCOSE TOLERANCE IMPAIRED [None]
  - THYROXINE INCREASED [None]
  - TRI-IODOTHYRONINE INCREASED [None]
